FAERS Safety Report 6388623 (Version 1)
Quarter: 2020Q3

REPORT INFORMATION
  Report Type: Report from Study
  Country: CA (occurrence: CA)
  Receive Date: 20070326
  Receipt Date: 20070326
  Transmission Date: 20201104
  Serious: Yes (Hospitalization, Other)
  Sender: FDA-Public Use
  Company Number: CA-JNJFOC-20061200085

PATIENT
  Age: 10 Year
  Sex: Female
  Weight: 21 kg

DRUGS (18)
  1. AMIKACIN. [Suspect]
     Active Substance: AMIKACIN
     Indication: MYCOBACTERIUM AVIUM COMPLEX INFECTION
     Route: 042
  2. LAMIVUDINE. [Concomitant]
     Active Substance: LAMIVUDINE
     Indication: HIV INFECTION
     Route: 048
  3. DARUNAVIR [Suspect]
     Active Substance: DARUNAVIR
     Route: 048
  4. AMBISOME [Suspect]
     Active Substance: AMPHOTERICIN B
     Indication: OESOPHAGEAL CANDIDIASIS
     Route: 042
  5. CLOBAZAM. [Concomitant]
     Active Substance: CLOBAZAM
     Indication: SEIZURE
     Route: 048
  6. CLARITHROMYCIN. [Concomitant]
     Active Substance: CLARITHROMYCIN
     Indication: MYCOBACTERIUM AVIUM COMPLEX INFECTION
     Route: 048
  7. ATOVAQUONE. [Concomitant]
     Active Substance: ATOVAQUONE
     Indication: ANTIFUNGAL PROPHYLAXIS
     Route: 048
  8. TENOFOVIR [Suspect]
     Active Substance: TENOFOVIR
     Indication: HIV INFECTION
     Route: 048
  9. ATOVAQUONE. [Concomitant]
     Active Substance: ATOVAQUONE
     Indication: TOXOPLASMOSIS PROPHYLAXIS
     Route: 048
  10. ETRAVIRINE [Suspect]
     Active Substance: ETRAVIRINE
     Indication: HIV INFECTION
     Route: 048
  11. LAMIVUDINE. [Concomitant]
     Active Substance: LAMIVUDINE
     Route: 048
  12. RIFABUTIN. [Concomitant]
     Active Substance: RIFABUTIN
     Indication: MYCOBACTERIUM AVIUM COMPLEX INFECTION
     Route: 048
  13. FLUCONAZOLE. [Concomitant]
     Active Substance: FLUCONAZOLE
     Indication: OESOPHAGEAL CANDIDIASIS
     Route: 048
  14. DARUNAVIR [Suspect]
     Active Substance: DARUNAVIR
     Indication: HIV INFECTION
     Route: 048
  15. RITONAVIR. [Suspect]
     Active Substance: RITONAVIR
     Indication: HIV INFECTION
     Route: 048
  16. PREDNISOLONE. [Concomitant]
     Active Substance: PREDNISOLONE
     Indication: IMMUNE RECONSTITUTION INFLAMMATORY SYNDROME
     Route: 048
  17. HUMAN IMMUNOGLOBULIN G [Concomitant]
     Active Substance: HUMAN IMMUNOGLOBULIN G
     Indication: SINOBRONCHITIS
     Route: 042
  18. ETHAMBUTOL [Concomitant]
     Active Substance: ETHAMBUTOL HYDROCHLORIDE
     Indication: MYCOBACTERIUM AVIUM COMPLEX INFECTION
     Route: 048

REACTIONS (8)
  - Renal failure [Recovering/Resolving]
  - Immune reconstitution inflammatory syndrome [Recovered/Resolved]
  - Abdominal pain [Recovered/Resolved]
  - Hypertension [Recovering/Resolving]
  - Pyrexia [Recovered/Resolved]
  - Hypokalaemia [Recovered/Resolved]
  - Diarrhoea [Recovered/Resolved]
  - Proteinuria [Recovering/Resolving]

NARRATIVE: CASE EVENT DATE: 20061123
